FAERS Safety Report 5000388-7 (Version None)
Quarter: 2006Q2

REPORT INFORMATION
  Report Type: 
  Country: None (occurrence: None)
  Receive Date: 20060509
  Receipt Date: 20060426
  Transmission Date: 20061013
  Serious: Yes (Hospitalization)
  Sender: FDA-Public Use
  Company Number: 2006057177

PATIENT
  Age: 10 Year
  Sex: Female

DRUGS (1)
  1. AZITHROMYCIN [Suspect]
     Indication: ILL-DEFINED DISORDER
     Dosage: 250 MG, ORAL
     Route: 048
     Dates: start: 20060421

REACTIONS (2)
  - DRUG HYPERSENSITIVITY [None]
  - RESPIRATORY FAILURE [None]
